FAERS Safety Report 8728933 (Version 2)
Quarter: 2013Q3

REPORT INFORMATION
  Report Type: Spontaneous
  Country: US (occurrence: US)
  Receive Date: 20120817
  Receipt Date: 20130823
  Transmission Date: 20140515
  Serious: No
  Sender: FDA-Public Use
  Company Number: US-BRISTOL-MYERS SQUIBB COMPANY-16215477

PATIENT
  Age: 47 Year
  Sex: Female
  Weight: 63.04 kg

DRUGS (2)
  1. SPRYCEL (CML) TABS 100 MG [Suspect]
     Indication: CHRONIC MYELOID LEUKAEMIA
     Dosage: EXP: 18SEP13. DOSE DECREASED TO 80MG AND THEN TO 50MG PER DAY 3 MONTHS AGO
     Route: 048
     Dates: start: 201111
  2. LEVOTHYROXINE [Suspect]
     Indication: THYROID CANCER

REACTIONS (3)
  - Headache [Recovering/Resolving]
  - Nail discolouration [Unknown]
  - Chest pain [Unknown]
